FAERS Safety Report 24591361 (Version 2)
Quarter: 2024Q4

REPORT INFORMATION
  Report Type: Spontaneous
  Country: US (occurrence: US)
  Receive Date: 20241108
  Receipt Date: 20241108
  Transmission Date: 20250114
  Serious: No
  Sender: JOHNSON AND JOHNSON
  Company Number: US-JNJFOC-20241036223

PATIENT
  Sex: Female

DRUGS (2)
  1. INVEGA HAFYERA [Suspect]
     Active Substance: PALIPERIDONE PALMITATE
     Indication: Schizophrenia
     Dosage: 1.092 MG
     Route: 030
  2. INVEGA HAFYERA [Suspect]
     Active Substance: PALIPERIDONE PALMITATE

REACTIONS (6)
  - Behaviour disorder [Unknown]
  - Decreased interest [Unknown]
  - Paranoia [Unknown]
  - Social avoidant behaviour [Unknown]
  - Eating disorder [Unknown]
  - Drug intolerance [Unknown]
